FAERS Safety Report 7745527-X (Version None)
Quarter: 2011Q3

REPORT INFORMATION
  Report Type: 
  Country: None (occurrence: None)
  Receive Date: 20110908
  Receipt Date: 20110823
  Transmission Date: 20111222
  Serious: Yes (Hospitalization, Other)
  Sender: FDA-Public Use
  Company Number: AUR-APL-2011-04851

PATIENT
  Age: 84 Year
  Sex: Female

DRUGS (10)
  1. METOPROLOL TARTRATE [Suspect]
     Indication: ESSENTIAL HYPERTENSION
     Dosage: ORAL
     Dates: end: 20110707
  2. CLINDAMYCIN HCL [Concomitant]
  3. FLUTICASONE PROPIONATE [Concomitant]
  4. ACETAMINOPHEN [Concomitant]
  5. TIPRAOL (TRAMADOL HYDROCHLORIDE) [Concomitant]
  6. FELODIPINE (FELOPDIPINE) [Concomitant]
  7. SPIRIVIA (TIOTROPIUM BROMIDE) [Concomitant]
  8. RAMIPRIL [Suspect]
     Indication: ESSENTIAL HYPERTENSION
     Dosage: 0.5 MG, 1 D, ORAL
     Route: 048
     Dates: end: 20110707
  9. FUROSEMIDE [Concomitant]
  10. AMITRIPTYLINE HCL [Concomitant]

REACTIONS (2)
  - BRADYCARDIA [None]
  - BLOOD CREATININE INCREASED [None]
